FAERS Safety Report 5623394-8 (Version None)
Quarter: 2008Q1

REPORT INFORMATION
  Report Type: 
  Country: None (occurrence: None)
  Receive Date: 20080212
  Receipt Date: 20080205
  Transmission Date: 20080703
  Serious: Yes (Other)
  Sender: FDA-Public Use
  Company Number: US-ALLERGAN-0800565US

PATIENT
  Sex: Female

DRUGS (2)
  1. BOTOX [Suspect]
     Indication: DYSTONIA
     Dosage: 150 UNITS, SINGLE
     Route: 030
     Dates: start: 20080109, end: 20080109
  2. BOTOX [Suspect]
     Indication: TORTICOLLIS

REACTIONS (3)
  - MOTOR DYSFUNCTION [None]
  - MUSCULAR WEAKNESS [None]
  - SENSORY LOSS [None]
